FAERS Safety Report 18748804 (Version 4)
Quarter: 2022Q4

REPORT INFORMATION
  Report Type: Spontaneous
  Country: US (occurrence: US)
  Receive Date: 20210115
  Receipt Date: 20221013
  Transmission Date: 20230112
  Serious: Yes (Hospitalization)
  Sender: FDA-Public Use
  Company Number: US-PFIZER INC-2020081849

PATIENT
  Age: 62 Year
  Sex: Male

DRUGS (3)
  1. RAPAMUNE [Suspect]
     Active Substance: SIROLIMUS
     Indication: Heart transplant
     Dosage: 2 MG, DAILY (TAKE 2 TABLETS( 2MG) DAILY)
  2. RAPAMUNE [Suspect]
     Active Substance: SIROLIMUS
     Indication: Arteriosclerosis coronary artery
     Dosage: 1.5 MG, DAILY (TAKE 1 TABLET (1MG TOTAL) BY MOUTH DAILY)/TAKE 2 TABLETS BY MOUTH DAILY 0.5MG TABLET
     Route: 048
  3. RAPAMUNE [Suspect]
     Active Substance: SIROLIMUS
     Dosage: 1.5 MG, DAILY, TAKE 2 TABLET (1MG TOTAL) ALONG WITH 0.5MG, 1 TABLET (0.5MG TOTAL)
     Route: 048

REACTIONS (3)
  - COVID-19 [Unknown]
  - Drug level increased [Unknown]
  - Off label use [Unknown]

NARRATIVE: CASE EVENT DATE: 20200101
